FAERS Safety Report 16860318 (Version 2)
Quarter: 2019Q4

REPORT INFORMATION
  Report Type: Report from Study
  Country: US (occurrence: US)
  Receive Date: 20190927
  Receipt Date: 20191017
  Transmission Date: 20200122
  Serious: Yes (Hospitalization)
  Sender: FDA-Public Use
  Company Number: US-TAIHO ONCOLOGY  INC-EU-2019-03149

PATIENT
  Age: 69 Year
  Sex: Female
  Weight: 59.02 kg

DRUGS (6)
  1. LONSURF [Suspect]
     Active Substance: TIPIRACIL HYDROCHLORIDE\TRIFLURIDINE
     Indication: COLON CANCER METASTATIC
     Dosage: CYCLE 3 STARTED ON 09SEP2019
     Route: 048
     Dates: start: 20190723, end: 20190913
  2. METFORMIN [Concomitant]
     Active Substance: METFORMIN HYDROCHLORIDE
     Dosage: NI
  3. VITAMINS [Concomitant]
     Active Substance: VITAMINS
     Dosage: NI
  4. NEUPOGEN [Concomitant]
     Active Substance: FILGRASTIM
     Dosage: PRN
  5. LISINOPRIL. [Concomitant]
     Active Substance: LISINOPRIL
     Dosage: NI
  6. CIPROFLOXACIN. [Concomitant]
     Active Substance: CIPROFLOXACIN
     Dosage: NI

REACTIONS (6)
  - Gastroenteritis viral [Recovered/Resolved]
  - White blood cell count decreased [Recovering/Resolving]
  - Disease progression [Unknown]
  - Urinary tract infection [Unknown]
  - Dehydration [Unknown]
  - Neutrophil count decreased [Unknown]

NARRATIVE: CASE EVENT DATE: 2019
